FAERS Safety Report 15647828 (Version 1)
Quarter: 2018Q4

REPORT INFORMATION
  Report Type: Spontaneous
  Country: IE (occurrence: IE)
  Receive Date: 20181122
  Receipt Date: 20181122
  Transmission Date: 20190205
  Serious: Yes (Hospitalization)
  Sender: FDA-Public Use
  Company Number: IE-PFIZER INC-2018475554

PATIENT
  Age: 17 Year
  Sex: Female

DRUGS (5)
  1. OLANZAPINE. [Concomitant]
     Active Substance: OLANZAPINE
     Indication: SEDATIVE THERAPY
  2. OLANZAPINE. [Concomitant]
     Active Substance: OLANZAPINE
     Indication: MANIA
  3. ATIVAN [Suspect]
     Active Substance: LORAZEPAM
     Indication: SEDATIVE THERAPY
  4. ATIVAN [Suspect]
     Active Substance: LORAZEPAM
     Indication: MANIA
  5. ATIVAN [Suspect]
     Active Substance: LORAZEPAM
     Indication: PSYCHOTIC DISORDER
     Dosage: UNK, CYCLIC, GRADUALLY UP TO 3MG FOR ABOUT A WEEK  THEN TAPERED DOWN, TTHEN OFF FOR 2 WEEKS
     Dates: start: 201808

REACTIONS (5)
  - Dizziness [Unknown]
  - Retching [Unknown]
  - Epistaxis [Unknown]
  - Rebound effect [Unknown]
  - Anxiety [Unknown]
